FAERS Safety Report 11804429 (Version 2)
Quarter: 2016Q4

REPORT INFORMATION
  Report Type: Spontaneous
  Country: US (occurrence: US)
  Receive Date: 20151204
  Receipt Date: 20161222
  Transmission Date: 20170206
  Serious: No
  Sender: FDA-Public Use
  Company Number: US-BAUSCH-BL-2014-010651

PATIENT
  Age: 83 Year
  Sex: Female

DRUGS (3)
  1. XENAZINE [Suspect]
     Active Substance: TETRABENAZINE
     Indication: CHOREA
     Dosage: 1 TABLET IN THE MORNING AND 2 TABLETS IN THE EVENING.
     Route: 048
     Dates: start: 20141118
  2. XENAZINE [Suspect]
     Active Substance: TETRABENAZINE
     Dosage: HALF TABLET IN THE MORNING AND HALF TABLET IN THE EVENING.
     Route: 048
  3. XENAZINE [Suspect]
     Active Substance: TETRABENAZINE
     Route: 048
     Dates: start: 20150110

REACTIONS (9)
  - Feeling abnormal [Unknown]
  - Decreased appetite [Unknown]
  - Off label use [Not Recovered/Not Resolved]
  - Mastication disorder [Unknown]
  - Fatigue [Not Recovered/Not Resolved]
  - Weight decreased [Unknown]
  - Dizziness [Unknown]
  - Nausea [Not Recovered/Not Resolved]
  - Asthenia [Not Recovered/Not Resolved]

NARRATIVE: CASE EVENT DATE: 2014
